FAERS Safety Report 6254446-X (Version None)
Quarter: 2009Q3

REPORT INFORMATION
  Report Type: 
  Country: None (occurrence: None)
  Receive Date: 20090701
  Receipt Date: 20090701
  Transmission Date: 20100115
  Serious: Yes (Death, Hospitalization)
  Sender: FDA-Public Use
  Company Number: None

PATIENT
  Sex: Female
  Weight: 66.6788 kg

DRUGS (1)
  1. BONIVA [Suspect]
     Indication: OSTEOPENIA
     Dosage: 3MG ONCE IV
     Route: 042
     Dates: start: 20090201, end: 20090201

REACTIONS (4)
  - CHEST PAIN [None]
  - DYSPNOEA [None]
  - PAIN IN JAW [None]
  - PALPITATIONS [None]
